FAERS Safety Report 14211487 (Version 1)
Quarter: 2017Q4

REPORT INFORMATION
  Report Type: Spontaneous
  Country: JP (occurrence: JP)
  Receive Date: 20171121
  Receipt Date: 20171121
  Transmission Date: 20180321
  Serious: Yes (Other)
  Sender: FDA-Public Use
  Company Number: JP-PFIZER INC-2017495358

PATIENT
  Age: 76 Year
  Sex: Male

DRUGS (7)
  1. GELPART [Concomitant]
     Active Substance: GELATIN
     Dosage: UNK
  2. SPIRONOLACTONE. [Suspect]
     Active Substance: SPIRONOLACTONE
     Dosage: 50 MG, UNK
  3. EPIRUBICIN [Concomitant]
     Active Substance: EPIRUBICIN
     Indication: HEPATOCELLULAR CARCINOMA
     Dosage: UNK
     Route: 013
  4. MITOMYCIN C [Concomitant]
     Active Substance: MITOMYCIN
     Indication: HEPATOCELLULAR CARCINOMA
     Dosage: UNK
     Route: 013
  5. IA COR [Suspect]
     Active Substance: CISPLATIN
     Indication: HEPATOCELLULAR CARCINOMA
     Dosage: 80 MG, UNK
     Route: 013
  6. AZOSEMIDE [Suspect]
     Active Substance: AZOSEMIDE
     Dosage: 30 MG, UNK
  7. LIPIODOL [Concomitant]
     Active Substance: ETHIODIZED OIL
     Indication: HEPATOCELLULAR CARCINOMA
     Dosage: UNK
     Route: 013

REACTIONS (3)
  - Renal impairment [Unknown]
  - Weight abnormal [Unknown]
  - Ascites [Unknown]
